FAERS Safety Report 5592803-5 (Version None)
Quarter: 2008Q1

REPORT INFORMATION
  Report Type: 
  Country: None (occurrence: None)
  Receive Date: 20080114
  Receipt Date: 20080104
  Transmission Date: 20080703
  Serious: Yes (Other)
  Sender: FDA-Public Use
  Company Number: 2008000509

PATIENT
  Sex: Male

DRUGS (1)
  1. NEOSPORIN [Suspect]
     Dosage: ^SWALLOWED A WHOLE TUBE^

REACTIONS (3)
  - EXPIRED DRUG ADMINISTERED [None]
  - INCORRECT ROUTE OF DRUG ADMINISTRATION [None]
  - INTENTIONAL DRUG MISUSE [None]
